FAERS Safety Report 6364812-X (Version None)
Quarter: 2009Q3

REPORT INFORMATION
  Report Type: 
  Country: None (occurrence: None)
  Receive Date: 20090919
  Receipt Date: 20090730
  Transmission Date: 20100115
  Serious: Yes (Other)
  Sender: FDA-Public Use
  Company Number: US-ABBOTT-09P-163-0588595-00

PATIENT
  Sex: Female

DRUGS (13)
  1. HUMIRA [Suspect]
     Indication: PSORIATIC ARTHROPATHY
     Route: 058
     Dates: start: 20060101, end: 20080201
  2. HUMIRA [Suspect]
     Route: 058
     Dates: start: 20080201, end: 20090701
  3. METHOTREXATE [Concomitant]
     Indication: DRUG USE FOR UNKNOWN INDICATION
  4. ALLOPURINOL [Concomitant]
     Indication: DRUG USE FOR UNKNOWN INDICATION
  5. ASPIRIN [Concomitant]
     Indication: DRUG USE FOR UNKNOWN INDICATION
  6. CLOBEX [Concomitant]
     Indication: DRUG USE FOR UNKNOWN INDICATION
  7. CLONIDINE [Concomitant]
     Indication: DRUG USE FOR UNKNOWN INDICATION
  8. LEXOTHYROXISCE [Concomitant]
     Indication: DRUG USE FOR UNKNOWN INDICATION
  9. LIPITOR [Concomitant]
     Indication: DRUG USE FOR UNKNOWN INDICATION
  10. METOPROLOL TARTRATE [Concomitant]
     Indication: DRUG USE FOR UNKNOWN INDICATION
  11. NORVASC [Concomitant]
     Indication: DRUG USE FOR UNKNOWN INDICATION
  12. TACLONEX [Concomitant]
     Indication: DRUG USE FOR UNKNOWN INDICATION
  13. WELLBUTRIN [Concomitant]
     Indication: DRUG USE FOR UNKNOWN INDICATION

REACTIONS (2)
  - ARTHRALGIA [None]
  - MULTIPLE SCLEROSIS [None]
